FAERS Safety Report 14431888 (Version 2)
Quarter: 2018Q1

REPORT INFORMATION
  Report Type: Report from Study
  Country: US (occurrence: US)
  Receive Date: 20180124
  Receipt Date: 20180306
  Transmission Date: 20180509
  Serious: Yes (Other)
  Sender: FDA-Public Use
  Company Number: PHEH2018US002512

PATIENT
  Sex: Female

DRUGS (2)
  1. COSENTYX [Suspect]
     Active Substance: SECUKINUMAB
     Dosage: 150 MG, QMO
     Route: 058
  2. COSENTYX [Suspect]
     Active Substance: SECUKINUMAB
     Indication: PSORIATIC ARTHROPATHY
     Dosage: 300 MG, QMO
     Route: 058
     Dates: start: 20171201

REACTIONS (8)
  - Localised infection [Unknown]
  - Inappropriate schedule of drug administration [Unknown]
  - Respiratory tract infection [Unknown]
  - Psoriatic arthropathy [Unknown]
  - Nasal ulcer [Unknown]
  - Psoriasis [Unknown]
  - Stomatitis [Unknown]
  - Skin wound [Unknown]
